FAERS Safety Report 16527298 (Version 2)
Quarter: 2019Q3

REPORT INFORMATION
  Report Type: Spontaneous
  Country: US (occurrence: US)
  Receive Date: 20190704
  Receipt Date: 20190723
  Transmission Date: 20191004
  Serious: Yes (Hospitalization)
  Sender: FDA-Public Use
  Company Number: US-TEVA-2019-US-1070382

PATIENT
  Age: 30 Year
  Sex: Female

DRUGS (8)
  1. LIDOCAINE. [Suspect]
     Active Substance: LIDOCAINE
     Indication: CARDIOTOXICITY
     Dosage: LIDOCAINE INFUSION AT RATE OF 2-4 MG/MINUTE
     Route: 050
  2. SODIUM BICARBONATE. [Suspect]
     Active Substance: SODIUM BICARBONATE
     Indication: CARDIOTOXICITY
     Dosage: TWELVE 50 MEQ DOSES OF SODIUM BICARBONATE OVER 1.5 HOUR
     Route: 040
  3. DESIPRAMINE [Suspect]
     Active Substance: DESIPRAMINE
     Dosage: INGESTED AN UNKNOWN QUANTITY OF DESIPRAMINE
     Route: 048
  4. ZOLPIDEM [Suspect]
     Active Substance: ZOLPIDEM TARTRATE
     Dosage: INGESTED AN UNKNOWN QUANTITY OF ZOLPIDEM
     Route: 048
  5. SODIUM BICARBONATE. [Suspect]
     Active Substance: SODIUM BICARBONATE
     Route: 041
  6. HYPERTONIC SALINE [Concomitant]
     Active Substance: SODIUM CHLORIDE
     Indication: CARDIOTOXICITY
     Route: 050
  7. SODIUM BICARBONATE. [Suspect]
     Active Substance: SODIUM BICARBONATE
     Indication: CARDIOTOXICITY
     Dosage: SEVEN 50 MEQ DOSES OF SODIUM BICARBONATE OVER ONE HOUR
     Route: 040
  8. FAT EMULSION NOS [Suspect]
     Active Substance: EGG PHOSPHOLIPIDS\SAFFLOWER OIL\SOYBEAN OIL
     Indication: CARDIOTOXICITY
     Route: 042

REACTIONS (6)
  - Somnolence [Recovered/Resolved]
  - Drug ineffective [Unknown]
  - Cardiotoxicity [Recovered/Resolved]
  - Hypernatraemia [Recovered/Resolved]
  - Mydriasis [Recovered/Resolved]
  - Alkalosis [Recovered/Resolved]
